FAERS Safety Report 9913339 (Version 1)
Quarter: 2014Q1

REPORT INFORMATION
  Report Type: Spontaneous
  Country: US (occurrence: None)
  Receive Date: 20140218
  Receipt Date: 20140218
  Transmission Date: 20141002
  Serious: Yes (Hospitalization)
  Sender: FDA-Public Use
  Company Number: None

PATIENT
  Age: 47 Year
  Sex: Female
  Weight: 47.5 kg

DRUGS (1)
  1. HALAVEN [Suspect]
     Indication: CERVIX CARCINOMA
     Route: 042
     Dates: start: 20131113, end: 20140122

REACTIONS (5)
  - Anaemia [None]
  - Rectal haemorrhage [None]
  - Tachycardia [None]
  - Pain [None]
  - Asthenia [None]
